FAERS Safety Report 8857946 (Version 1)
Quarter: 2012Q4

REPORT INFORMATION
  Report Type: 
  Country: US (occurrence: US)
  Receive Date: 20121024
  Receipt Date: 20121024
  Transmission Date: 20130627
  Serious: No
  Sender: FDA-Public Use
  Company Number: US-AMGEN-USASP2012003628

PATIENT
  Sex: Male

DRUGS (6)
  1. ENBREL [Suspect]
     Indication: PRODUCT USED FOR UNKNOWN INDICATION
     Dosage: 50 mg, qwk
     Route: 058
  2. CELEBREX [Concomitant]
     Dosage: 50 mg, UNK
  3. COSAMIN DS [Concomitant]
  4. MULTIVITAMIN                       /00097801/ [Concomitant]
  5. CLARITIN                           /00413701/ [Concomitant]
     Dosage: 10 mg, UNK
  6. ZITHROMAX [Concomitant]
     Dosage: 500 mg, UNK

REACTIONS (1)
  - Nasopharyngitis [Unknown]
